FAERS Safety Report 6423560-8 (Version None)
Quarter: 2009Q4

REPORT INFORMATION
  Report Type: 
  Country: None (occurrence: None)
  Receive Date: 20091030
  Receipt Date: 20091030
  Transmission Date: 20100525
  Serious: No
  Sender: FDA-Public Use
  Company Number: None

PATIENT

DRUGS (2)
  1. CARBIDOPA-LEVODOPA [Suspect]
     Dosage: 25/100MG TID PO
     Route: 048
     Dates: start: 20090804, end: 20090811
  2. ROPINIROLE [Suspect]
     Dosage: 0.25 MG TID PO
     Route: 048
     Dates: start: 20090812, end: 20090819

REACTIONS (2)
  - SEDATION [None]
  - TRANSIENT ISCHAEMIC ATTACK [None]
